FAERS Safety Report 13117114 (Version 3)
Quarter: 2017Q1

REPORT INFORMATION
  Report Type: Spontaneous
  Country: US (occurrence: US)
  Receive Date: 20170116
  Receipt Date: 20170213
  Transmission Date: 20170428
  Serious: Yes (Other)
  Sender: FDA-Public Use
  Company Number: US-HORIZON-RAV-0008-2017

PATIENT
  Age: 1 Year
  Sex: Male

DRUGS (2)
  1. RAVICTI [Suspect]
     Active Substance: GLYCEROL PHENYLBUTYRATE
     Indication: UREA CYCLE ENZYME DEFICIENCY
  2. ARGININE [Concomitant]
     Active Substance: ARGININE
     Indication: UREA CYCLE ENZYME DEFICIENCY

REACTIONS (5)
  - Hypertonia [Recovering/Resolving]
  - Drug administered to patient of inappropriate age [Unknown]
  - Hyperammonaemic crisis [Recovering/Resolving]
  - Seizure [Recovering/Resolving]
  - Developmental delay [Unknown]
